FAERS Safety Report 23824279 (Version 4)
Quarter: 2024Q2

REPORT INFORMATION
  Report Type: Other
  Country: US (occurrence: None)
  Receive Date: 20240507
  Receipt Date: 20240611
  Transmission Date: 20240716
  Serious: Yes (Hospitalization)
  Sender: FDA-Public Use
  Company Number: US-ROCHE-3555409

PATIENT
  Age: 6 Year
  Sex: Male
  Weight: 25.3 kg

DRUGS (1)
  1. EVRYSDI [Suspect]
     Active Substance: RISDIPLAM
     Indication: Spinal muscular atrophy
     Dosage: 6. 6 ML
     Dates: start: 20230426

REACTIONS (2)
  - Seizure [Recovered/Resolved with Sequelae]
  - Status epilepticus [Recovering/Resolving]

NARRATIVE: CASE EVENT DATE: 20240424
